FAERS Safety Report 6247239-0 (Version None)
Quarter: 2009Q2

REPORT INFORMATION
  Report Type: 
  Country: None (occurrence: None)
  Receive Date: 20090624
  Receipt Date: 20090624
  Transmission Date: 20091009
  Serious: Yes (Life-Threatening, Hospitalization)
  Sender: FDA-Public Use
  Company Number: None

PATIENT
  Age: 61 Year
  Sex: Male

DRUGS (11)
  1. AMLODIPINE [Suspect]
     Indication: SUICIDE ATTEMPT
     Dosage: 60 X 5MG TAB PO
     Route: 048
     Dates: start: 20090410
  2. CARVEDILOL [Suspect]
     Indication: SUICIDE ATTEMPT
     Dosage: 120 X 6.25MG TAB PO
     Route: 048
     Dates: start: 20090410
  3. XOPENEX [Concomitant]
  4. GLYBURIDE [Concomitant]
  5. ALLEGRA [Concomitant]
  6. ACTOS [Concomitant]
  7. GLUCOPHAGE [Concomitant]
  8. ZOCOR [Concomitant]
  9. PROZAC [Concomitant]
  10. PULMICORT-100 [Concomitant]
  11. LOVENOX [Concomitant]

REACTIONS (3)
  - BRADYCARDIA [None]
  - HYPOTENSION [None]
  - INTENTIONAL OVERDOSE [None]
